FAERS Safety Report 12907633 (Version 3)
Quarter: 2016Q4

REPORT INFORMATION
  Report Type: Report from Study
  Country: IN (occurrence: IN)
  Receive Date: 20161103
  Receipt Date: 20161221
  Transmission Date: 20170207
  Serious: Yes (Hospitalization)
  Sender: FDA-Public Use
  Company Number: IN-PFIZER INC-2016491396

PATIENT
  Age: 60 Year
  Sex: Female
  Weight: 48 kg

DRUGS (18)
  1. BLINDED PF-06439535 [Suspect]
     Active Substance: INVESTIGATIONAL PRODUCT
     Indication: NON-SMALL CELL LUNG CANCER
     Dosage: 705 MG, EVERY 3 WEEKS
     Route: 042
     Dates: start: 20160930, end: 20160930
  2. BLINDED PF-06439535 [Suspect]
     Active Substance: INVESTIGATIONAL PRODUCT
     Dosage: 741 MG, EVERY 3 WEEKS
     Dates: start: 20161027, end: 20161027
  3. BLINDED PF-06439535 [Suspect]
     Active Substance: INVESTIGATIONAL PRODUCT
     Dosage: 741 MG, EVERY 3 WEEKS
     Dates: start: 20161027, end: 20161027
  4. BLINDED BEVACIZUMAB [Suspect]
     Active Substance: BEVACIZUMAB
     Dosage: UNK
  5. BLINDED PF-06439535 [Suspect]
     Active Substance: INVESTIGATIONAL PRODUCT
     Indication: NON-SMALL CELL LUNG CANCER
     Dosage: 705 MG, EVERY 3 WEEKS
     Route: 042
     Dates: start: 20160930, end: 20160930
  6. BLINDED BEVACIZUMAB [Suspect]
     Active Substance: BEVACIZUMAB
     Dosage: 741 MG, EVERY 3 WEEKS
     Dates: start: 20161027, end: 20161027
  7. BLINDED BEVACIZUMAB [Suspect]
     Active Substance: BEVACIZUMAB
     Indication: NON-SMALL CELL LUNG CANCER
     Dosage: 705 MG, EVERY 3 WEEKS
     Route: 042
     Dates: start: 20160930, end: 20160930
  8. BLINDED BEVACIZUMAB [Suspect]
     Active Substance: BEVACIZUMAB
     Dosage: 741 MG, EVERY 3 WEEKS
     Dates: start: 20161027, end: 20161027
  9. PACLITAXEL. [Suspect]
     Active Substance: PACLITAXEL
     Dosage: 288 MG, CYCLIC
     Route: 042
     Dates: start: 20160930, end: 20160930
  10. BLINDED BEVACIZUMAB [Suspect]
     Active Substance: BEVACIZUMAB
     Dosage: UNK
  11. BLINDED PF-06439535 [Suspect]
     Active Substance: INVESTIGATIONAL PRODUCT
     Dosage: UNK
  12. CARBOPLATIN. [Suspect]
     Active Substance: CARBOPLATIN
     Dosage: 849.78 MG, CYCLIC
     Route: 042
     Dates: start: 20161027, end: 20161027
  13. PACLITAXEL. [Suspect]
     Active Substance: PACLITAXEL
     Indication: NON-SMALL CELL LUNG CANCER
     Dosage: 288 MG, CYCLIC
     Route: 042
     Dates: start: 20160910, end: 20160910
  14. PACLITAXEL. [Suspect]
     Active Substance: PACLITAXEL
     Dosage: 296 MG, CYCLIC
     Route: 042
     Dates: start: 20161027, end: 20161027
  15. CARBOPLATIN. [Suspect]
     Active Substance: CARBOPLATIN
     Dosage: 809.16 MG, CYCLIC
     Route: 042
     Dates: start: 20160930, end: 20160930
  16. BLINDED PF-06439535 [Suspect]
     Active Substance: INVESTIGATIONAL PRODUCT
     Dosage: UNK
  17. CARBOPLATIN. [Suspect]
     Active Substance: CARBOPLATIN
     Indication: NON-SMALL CELL LUNG CANCER
     Dosage: 809.16 MG, CYCLIC
     Route: 042
     Dates: start: 20160910, end: 20160910
  18. BLINDED BEVACIZUMAB [Suspect]
     Active Substance: BEVACIZUMAB
     Indication: NON-SMALL CELL LUNG CANCER
     Dosage: 705 MG, EVERY 3 WEEKS
     Route: 042
     Dates: start: 20160930, end: 20160930

REACTIONS (2)
  - Lower respiratory tract infection [Recovered/Resolved]
  - Infection [Recovered/Resolved]

NARRATIVE: CASE EVENT DATE: 20161019
